FAERS Safety Report 13197518 (Version 2)
Quarter: 2017Q1

REPORT INFORMATION
  Report Type: Spontaneous
  Country: CA (occurrence: CA)
  Receive Date: 20170208
  Receipt Date: 20170210
  Transmission Date: 20170428
  Serious: Yes (Other)
  Sender: FDA-Public Use
  Company Number: CA-SA-2016SA231512

PATIENT
  Age: 78 Year
  Sex: Female
  Weight: 38 kg

DRUGS (9)
  1. AMITRIPTYLINE [Concomitant]
     Active Substance: AMITRIPTYLINE
     Dosage: DOSE: 10
  2. VITAMIN A [Concomitant]
     Active Substance: VITAMIN A
     Route: 048
  3. VITAMIN C [Concomitant]
     Active Substance: ASCORBIC ACID
  4. ACETAMINOPHEN. [Concomitant]
     Active Substance: ACETAMINOPHEN
  5. FERRLECIT [Suspect]
     Active Substance: SODIUM FERRIC GLUCONATE COMPLEX
     Indication: IRON DEFICIENCY
     Dosage: INFUSED OVER 1 HOUR, IV PUMP
     Dates: start: 20161213, end: 20161213
  6. CYANOCOBALAMIN. [Concomitant]
     Active Substance: CYANOCOBALAMIN
  7. VENOFER [Concomitant]
     Active Substance: IRON SUCROSE
     Dates: start: 20160105
  8. SALBUTAMOL [Concomitant]
     Active Substance: ALBUTEROL
     Dosage: AT PM DOSE:4 PUFF(S)
  9. VITAMIN B [Concomitant]
     Active Substance: VITAMIN B

REACTIONS (8)
  - Hypoxia [Recovered/Resolved]
  - Hyperhidrosis [Recovered/Resolved]
  - Hypotension [Recovered/Resolved]
  - Circulatory collapse [Unknown]
  - Nausea [Recovered/Resolved]
  - Product use issue [Unknown]
  - Vomiting [Recovered/Resolved]
  - Overdose [Unknown]

NARRATIVE: CASE EVENT DATE: 20161213
